FAERS Safety Report 7529510-5 (Version None)
Quarter: 2011Q2

REPORT INFORMATION
  Report Type: 
  Country: None (occurrence: None)
  Receive Date: 20110607
  Receipt Date: 20050530
  Transmission Date: 20111010
  Serious: Yes (Death)
  Sender: FDA-Public Use
  Company Number: PHHO2005LK17035

PATIENT

DRUGS (1)
  1. GLEEVEC [Suspect]

REACTIONS (3)
  - NEOPLASM MALIGNANT [None]
  - SEPSIS [None]
  - BLAST CRISIS IN MYELOGENOUS LEUKAEMIA [None]
